FAERS Safety Report 15400566 (Version 1)
Quarter: 2018Q3

REPORT INFORMATION
  Report Type: Spontaneous
  Country: US (occurrence: US)
  Receive Date: 20180919
  Receipt Date: 20180919
  Transmission Date: 20181010
  Serious: Yes (Other)
  Sender: FDA-Public Use
  Company Number: US-ASTELLAS-2018US040364

PATIENT
  Age: 35 Year
  Sex: Female
  Weight: 59 kg

DRUGS (12)
  1. MYFORTIC [Concomitant]
     Active Substance: MYCOPHENOLATE SODIUM
     Indication: PANCREAS ISLET CELL TRANSPLANT
     Route: 065
  2. ZENAPAX [Suspect]
     Active Substance: DACLIZUMAB
     Indication: PANCREAS ISLET CELL TRANSPLANT
     Route: 042
  3. ENBREL [Concomitant]
     Active Substance: ETANERCEPT
     Indication: PANCREAS ISLET CELL TRANSPLANT
     Dosage: 25 MG, UNKNOWN FREQ. (DAYS 3, 7, AND 10)
     Route: 065
  4. BYETTA [Suspect]
     Active Substance: EXENATIDE
     Indication: TYPE 1 DIABETES MELLITUS
     Dosage: 5?10 UG, TWICE DAILY
     Route: 065
  5. RAPAMUNE [Suspect]
     Active Substance: SIROLIMUS
     Indication: PANCREAS ISLET CELL TRANSPLANT
     Dosage: UNK UNK, UNKNOWN FREQ. (TARGETED TROUGH LEVELS OF 10?15 NG/ML FOR 3 MONTHS POST?TRANSPLANT, 7?10 NG)
     Route: 065
  6. LOVENOX [Concomitant]
     Active Substance: ENOXAPARIN SODIUM
     Indication: PROPHYLAXIS
     Dosage: UNK UNK, UNKNOWN FREQ.
     Route: 065
  7. JANUVIA [Concomitant]
     Active Substance: SITAGLIPTIN PHOSPHATE
     Indication: TYPE 1 DIABETES MELLITUS
     Route: 065
  8. MYCOPHENOLIC ACID. [Concomitant]
     Active Substance: MYCOPHENOLIC ACID
     Indication: PANCREAS ISLET CELL TRANSPLANT
     Route: 065
  9. PROGRAF [Suspect]
     Active Substance: TACROLIMUS\TACROLIMUS ANHYDROUS
     Indication: PANCREAS ISLET CELL TRANSPLANT
     Dosage: 1 MG, TWICE DAILY (TARGETED TROUGH LEVELS OF 3?6 NG/ML)
     Route: 065
  10. INSULIN                            /00646001/ [Concomitant]
     Active Substance: INSULIN NOS
     Indication: TYPE 1 DIABETES MELLITUS
     Dosage: 0.5?0.7 UNITS (U/KG/DAY), ONCE DAILY
     Route: 058
  11. CELLCEPT [Concomitant]
     Active Substance: MYCOPHENOLATE MOFETIL\MYCOPHENOLATE MOFETIL HYDROCHLORIDE
     Indication: PANCREAS ISLET CELL TRANSPLANT
     Route: 065
  12. LANTUS [Concomitant]
     Active Substance: INSULIN GLARGINE
     Indication: TYPE 1 DIABETES MELLITUS
     Dosage: 4 U, ONCE DAILY
     Route: 065

REACTIONS (7)
  - Blood glucose increased [Unknown]
  - Mouth ulceration [Unknown]
  - Product use in unapproved indication [Unknown]
  - Anaphylactoid reaction [Unknown]
  - Drug intolerance [Unknown]
  - Nausea [Unknown]
  - Vomiting [Unknown]
